FAERS Safety Report 6633339-X (Version None)
Quarter: 2010Q1

REPORT INFORMATION
  Report Type: 
  Country: None (occurrence: None)
  Receive Date: 20100312
  Receipt Date: 20100226
  Transmission Date: 20100710
  Serious: Yes (Disabling, Other)
  Sender: FDA-Public Use
  Company Number: US-TYCO HEALTHCARE/MALLINCKRODT-T200900933

PATIENT
  Sex: Female
  Weight: 74.83 kg

DRUGS (12)
  1. OPTIMARK [Suspect]
     Indication: NUCLEAR MAGNETIC RESONANCE IMAGING BRAIN
     Dosage: 1 ML, SINGLE
     Dates: start: 20061023, end: 20061023
  2. MAGNEVIST [Suspect]
     Indication: NUCLEAR MAGNETIC RESONANCE IMAGING BRAIN
     Dosage: UNK
     Dates: start: 20050727, end: 20050727
  3. MAGNEVIST [Suspect]
     Indication: ANGIOGRAM
     Dosage: UNK
     Dates: start: 20050727, end: 20050727
  4. MAGNEVIST [Suspect]
     Indication: ARTERIOGRAM RENAL
     Dosage: UNK
     Dates: start: 20050810, end: 20050810
  5. GADOLINIUM [Suspect]
     Indication: NUCLEAR MAGNETIC RESONANCE IMAGING BRAIN
     Dosage: UNK
     Dates: start: 20060205, end: 20060205
  6. DIFLUCAN [Concomitant]
     Indication: VAGINAL INFECTION
     Dosage: 150 MG, QD
     Route: 048
     Dates: start: 20060714
  7. XANAX [Concomitant]
     Indication: ANXIETY
     Dosage: .25 MG, Q12 PRN
     Route: 048
     Dates: start: 20060804
  8. ATENOLOL [Concomitant]
     Indication: HYPERTENSION
     Dosage: 50 MG, BID
  9. RENAGEL                            /01459901/ [Concomitant]
     Indication: BLOOD PHOSPHORUS INCREASED
     Dosage: 1600 MG, TID
     Route: 048
  10. CATAPRES-TTS-1 [Concomitant]
     Indication: HYPERTENSION
     Dosage: 1 PATCH EVERY 7 DAYS
     Route: 062
  11. COUMADIN [Concomitant]
     Indication: ANTICOAGULANT THERAPY
     Dosage: 1 TAB MON AND FRI, 1/2 TAB TUES, WED, THURS, SAT, SUN
     Route: 048
  12. DARVOCET-N 100 [Concomitant]
     Indication: PAIN
     Dosage: 1 OR 2 TAB Q4 PRN
     Route: 048

REACTIONS (28)
  - ARTERIAL OCCLUSIVE DISEASE [None]
  - CHEST PAIN [None]
  - CONVULSION [None]
  - DEEP VEIN THROMBOSIS [None]
  - ENCEPHALOMALACIA [None]
  - EROSIVE DUODENITIS [None]
  - FLUID OVERLOAD [None]
  - HAEMORRHAGIC STROKE [None]
  - HELICOBACTER GASTRITIS [None]
  - HERPES SIMPLEX [None]
  - INTRA-ABDOMINAL HAEMATOMA [None]
  - METABOLIC ENCEPHALOPATHY [None]
  - MUSCULOSKELETAL DISORDER [None]
  - NAUSEA [None]
  - NEPHROGENIC SYSTEMIC FIBROSIS [None]
  - OEDEMA [None]
  - OESOPHAGEAL ULCER [None]
  - OESOPHAGITIS [None]
  - PARATHYROID DISORDER [None]
  - PNEUMONIA [None]
  - PULMONARY OEDEMA [None]
  - RENAL FAILURE CHRONIC [None]
  - RESPIRATORY FAILURE [None]
  - SPLENIC INFARCTION [None]
  - UPPER RESPIRATORY TRACT INFECTION [None]
  - URINARY TRACT INFECTION [None]
  - VOMITING [None]
  - WHEELCHAIR USER [None]
